FAERS Safety Report 4446639-9 (Version None)
Quarter: 2004Q3

REPORT INFORMATION
  Report Type: 
  Country: None (occurrence: None)
  Receive Date: 20040902
  Receipt Date: 20040816
  Transmission Date: 20050211
  Serious: Yes (Hospitalization, Other)
  Sender: FDA-Public Use
  Company Number: WAES 0408USA00496

PATIENT
  Age: 79 Year
  Sex: Female

DRUGS (5)
  1. COZAAR [Suspect]
     Indication: HYPERTENSION
     Dosage: 50 MG/DAILY PO
     Route: 048
     Dates: start: 20020121, end: 20040202
  2. BUFFERIN [Concomitant]
  3. DAONIL [Concomitant]
  4. NITRODERM [Concomitant]
  5. SIGMART [Concomitant]

REACTIONS (12)
  - AGITATION [None]
  - CARDIAC FAILURE [None]
  - CEREBRAL INFARCTION [None]
  - CONVULSION [None]
  - DELIRIUM [None]
  - DEMENTIA [None]
  - DEPRESSIVE DELUSION [None]
  - DIARRHOEA [None]
  - FALL [None]
  - FEMUR FRACTURE [None]
  - MALAISE [None]
  - PANCREATITIS [None]
